FAERS Safety Report 14998358 (Version 1)
Quarter: 2018Q2

REPORT INFORMATION
  Report Type: Spontaneous
  Country: DE (occurrence: DE)
  Receive Date: 20180611
  Receipt Date: 20180611
  Transmission Date: 20180711
  Serious: Yes (Hospitalization)
  Sender: FDA-Public Use
  Company Number: DE-TEVA-2018-DE-903922

PATIENT
  Age: 61 Year
  Sex: Male
  Weight: 95 kg

DRUGS (3)
  1. MARCUMAR [Suspect]
     Active Substance: PHENPROCOUMON
     Dosage: AFTER INR
     Route: 048
  2. BISOPROLOL [Suspect]
     Active Substance: BISOPROLOL
     Dosage: 1-0-1-0
     Route: 048
  3. PANTOPRAZOL [Concomitant]
     Active Substance: PANTOPRAZOLE SODIUM
     Dosage: 1-0-0-0
     Route: 048

REACTIONS (4)
  - Arrhythmia [Recovered/Resolved]
  - Accidental underdose [Recovered/Resolved]
  - Language disorder [Recovered/Resolved]
  - Electrocardiogram abnormal [Recovered/Resolved]
